FAERS Safety Report 9796049 (Version 3)
Quarter: 2014Q2

REPORT INFORMATION
  Report Type: Spontaneous
  Country: CL (occurrence: CL)
  Receive Date: 20140103
  Receipt Date: 20140530
  Transmission Date: 20141212
  Serious: Yes (Other)
  Sender: FDA-Public Use
  Company Number: CL-PFIZER INC-2013371944

PATIENT
  Age: 28 Year
  Sex: Female

DRUGS (3)
  1. AZULFIDINE [Suspect]
     Indication: CROHN^S DISEASE
     Dosage: 500 MG, 4X/DAY (EVERY 6 HOURS)
     Route: 048
     Dates: start: 201304
  2. FOLIC ACID [Concomitant]
  3. IRON [Concomitant]
     Dosage: UNK

REACTIONS (4)
  - Colitis ulcerative [Unknown]
  - Crohn^s disease [Unknown]
  - Oesophageal pain [Not Recovered/Not Resolved]
  - Vomiting [Unknown]
